FAERS Safety Report 19928320 (Version 1)
Quarter: 2021Q4

REPORT INFORMATION
  Report Type: Spontaneous
  Country: US (occurrence: US)
  Receive Date: 20211007
  Receipt Date: 20211007
  Transmission Date: 20220303
  Serious: Yes (Other)
  Sender: FDA-Public Use
  Company Number: US-GLAXOSMITHKLINE-US2021206135

PATIENT
  Age: 69 Year
  Sex: Male

DRUGS (13)
  1. TRELEGY ELLIPTA [Suspect]
     Active Substance: FLUTICASONE FUROATE\UMECLIDINIUM BROMIDE\VILANTEROL TRIFENATATE
     Indication: Lung neoplasm malignant
     Dosage: TRELEGY 100MCG, ONE PUFF ONCE PER DAY
     Dates: start: 20181001
  2. TRELEGY ELLIPTA [Suspect]
     Active Substance: FLUTICASONE FUROATE\UMECLIDINIUM BROMIDE\VILANTEROL TRIFENATATE
     Indication: Chronic obstructive pulmonary disease
  3. TRELEGY ELLIPTA [Suspect]
     Active Substance: FLUTICASONE FUROATE\UMECLIDINIUM BROMIDE\VILANTEROL TRIFENATATE
     Indication: Emphysema
  4. VENTOLIN HFA [Suspect]
     Active Substance: ALBUTEROL SULFATE
     Indication: Product used for unknown indication
     Dosage: 90 MCG 2 INHALES WHEN NEEDED FOR EMERGENCY
     Dates: start: 20080601
  5. MELOXICAM [Suspect]
     Active Substance: MELOXICAM
     Indication: Product used for unknown indication
     Dosage: 15 MG, ONE TABLET EVERY OTHER DAY
     Dates: start: 20161001
  6. OMEPRAZOLE [Suspect]
     Active Substance: OMEPRAZOLE
     Indication: Product used for unknown indication
     Dosage: 20 MG, ONE CAPSULE EVERY OTHER DAY
     Dates: start: 20161001
  7. BUMETANIDE [Suspect]
     Active Substance: BUMETANIDE
     Indication: Product used for unknown indication
     Dosage: 2 MG, QD FOR A FEW YEARS, THEN TO TWICE
     Dates: start: 20181001
  8. ATORVASTATIN [Suspect]
     Active Substance: ATORVASTATIN
     Indication: Product used for unknown indication
     Dosage: 20 MG, QD
     Dates: start: 20190101
  9. TAMSULOSIN [Suspect]
     Active Substance: TAMSULOSIN
     Indication: Product used for unknown indication
     Dosage: 0.4 MG, QD
     Dates: start: 20190201
  10. PADCEV [Suspect]
     Active Substance: ENFORTUMAB VEDOTIN-EJFV
     Indication: Product used for unknown indication
     Dosage: ONE DOSE (P-49222273 DOESN^T KNOW STRENGTH) A WEEK
     Dates: start: 20190801
  11. OXYCODONE HYDROCHLORIDE [Concomitant]
     Active Substance: OXYCODONE HYDROCHLORIDE
     Indication: Pain
     Dosage: 5 MG, TID
     Dates: start: 20210501
  12. GABAPENTIN [Concomitant]
     Active Substance: GABAPENTIN
     Indication: Neuropathy peripheral
     Dosage: 300 MG, 5 TIMES A DAY
     Dates: start: 20210601
  13. GABAPENTIN [Concomitant]
     Active Substance: GABAPENTIN
     Indication: Lymphoedema

REACTIONS (9)
  - Bladder cancer [Recovering/Resolving]
  - Malignant neoplasm progression [Unknown]
  - Neuropathy peripheral [Not Recovered/Not Resolved]
  - Metastases to bone [Unknown]
  - Lymphoedema [Not Recovered/Not Resolved]
  - Gait disturbance [Unknown]
  - Fall [Recovered/Resolved]
  - Upper limb fracture [Not Recovered/Not Resolved]
  - Off label use [Unknown]

NARRATIVE: CASE EVENT DATE: 20190201
